FAERS Safety Report 7126065-4 (Version None)
Quarter: 2010Q4

REPORT INFORMATION
  Report Type: 
  Country: None (occurrence: None)
  Receive Date: 20101129
  Receipt Date: 20101117
  Transmission Date: 20110411
  Serious: Yes (Hospitalization, Disabling)
  Sender: FDA-Public Use
  Company Number: JP-MERCK-0811USA02758

PATIENT
  Age: 87 Year
  Sex: Female

DRUGS (6)
  1. FOSAMAX [Suspect]
     Indication: OSTEOPOROSIS
     Route: 048
     Dates: start: 20081024, end: 20081114
  2. FOSAMAX [Suspect]
     Route: 048
     Dates: end: 20081001
  3. AZELASTINE HCL [Concomitant]
     Indication: HYPERTENSION
     Route: 048
     Dates: end: 20081114
  4. OLMETEC [Concomitant]
     Indication: HYPERTENSION
     Route: 048
     Dates: end: 20081114
  5. VESICARE [Concomitant]
     Indication: POLLAKIURIA
     Route: 048
     Dates: end: 20081114
  6. LENDORMIN [Concomitant]
     Indication: INSOMNIA
     Route: 048
     Dates: end: 20081114

REACTIONS (8)
  - CANDIDA TEST POSITIVE [None]
  - DECREASED APPETITE [None]
  - INAPPROPRIATE SCHEDULE OF DRUG ADMINISTRATION [None]
  - LIP INJURY [None]
  - MOUTH ULCERATION [None]
  - ORAL MUCOSA EROSION [None]
  - PNEUMONIA [None]
  - STOMATITIS [None]
